FAERS Safety Report 15374498 (Version 1)
Quarter: 2018Q3

REPORT INFORMATION
  Report Type: Spontaneous
  Country: US (occurrence: US)
  Receive Date: 20180906
  Receipt Date: 20180906
  Transmission Date: 20181010
  Serious: No
  Sender: FDA-Public Use
  Company Number: None

PATIENT
  Age: 16 Year
  Sex: Male
  Weight: 58.5 kg

DRUGS (2)
  1. MULTI VITAMIN [Concomitant]
     Active Substance: VITAMINS
  2. METHYLPHENIDATE 54MG ER MALLINCKRODT [Suspect]
     Active Substance: METHYLPHENIDATE
     Indication: ATTENTION DEFICIT/HYPERACTIVITY DISORDER
     Dosage: ?          QUANTITY:15 TABLET(S);?
     Route: 048
     Dates: start: 20180807, end: 20180905

REACTIONS (5)
  - Feeling jittery [None]
  - Product substitution issue [None]
  - Product quality issue [None]
  - Nervousness [None]
  - Drug effect decreased [None]

NARRATIVE: CASE EVENT DATE: 20180905
